FAERS Safety Report 9058447 (Version 1)
Quarter: 2013Q1

REPORT INFORMATION
  Report Type: Report from Study
  Country: US (occurrence: US)
  Receive Date: 20130211
  Receipt Date: 20130211
  Transmission Date: 20140127
  Serious: Yes (Hospitalization, Other)
  Sender: FDA-Public Use
  Company Number: US-BAYER-2012-136312

PATIENT
  Age: 67 Year
  Sex: Male

DRUGS (8)
  1. STIVARGA [Suspect]
     Indication: COLON CANCER
     Dosage: 160 MG, QD
     Route: 048
     Dates: start: 20121207, end: 20121214
  2. STIVARGA [Suspect]
     Indication: COLON CANCER
     Dosage: 40 MG, 1 TABLET DAILY
     Route: 048
     Dates: start: 20130118, end: 20130128
  3. GLYBURIDE W/METFORMIN [Concomitant]
     Dosage: 5MG-500MG TABLET
  4. ONDANSETRON [Concomitant]
  5. ARIXTRA [Concomitant]
     Dosage: 5MG/0.4 ML SUB - Q SYRINGE
  6. DULCOLAX [BISACODYL] [Concomitant]
  7. OXYCODONE [Concomitant]
     Indication: ABDOMINAL PAIN UPPER
  8. DOCUSATE [Concomitant]
     Indication: IRRITABLE BOWEL SYNDROME
     Dosage: DAILY DOSE 2 DF

REACTIONS (25)
  - Small intestinal obstruction [Recovered/Resolved]
  - Gastrointestinal motility disorder [Not Recovered/Not Resolved]
  - Atrial fibrillation [Recovered/Resolved]
  - Abdominal distension [Not Recovered/Not Resolved]
  - Weight decreased [Not Recovered/Not Resolved]
  - Dehydration [None]
  - Ascites [Recovered/Resolved]
  - Abdominal pain [None]
  - Dry skin [Not Recovered/Not Resolved]
  - Blood pressure fluctuation [Not Recovered/Not Resolved]
  - Pollakiuria [None]
  - Constipation [Not Recovered/Not Resolved]
  - Pyrexia [None]
  - Dry mouth [None]
  - Decreased appetite [None]
  - Blood potassium decreased [None]
  - Gastrooesophageal reflux disease [Not Recovered/Not Resolved]
  - Injection site bruising [None]
  - Catheter site pain [None]
  - Chromaturia [None]
  - Faeces discoloured [None]
  - Anaemia [None]
  - Dyspnoea [Not Recovered/Not Resolved]
  - Feeling abnormal [Not Recovered/Not Resolved]
  - Malaise [Not Recovered/Not Resolved]
